FAERS Safety Report 8299691-7 (Version None)
Quarter: 2012Q2

REPORT INFORMATION
  Report Type: 
  Country: None (occurrence: None)
  Receive Date: 20120419
  Receipt Date: 20120416
  Transmission Date: 20120825
  Serious: Yes (Hospitalization)
  Sender: FDA-Public Use
  Company Number: US-ROCHE-786279

PATIENT
  Sex: Female
  Weight: 94.3 kg

DRUGS (10)
  1. PEGINTERFERON ALFA-2A [Suspect]
     Indication: HEPATITIS C
     Dosage: INTERRUPTED
     Route: 058
  2. COPEGUS [Suspect]
     Indication: HEPATITIS C
     Route: 048
  3. TRIAMCINOLONE [Concomitant]
     Dosage: AS NECESSARY
  4. METFORMIN HCL [Concomitant]
  5. LEXAPRO [Concomitant]
  6. ANORECTAL PREPARATIONS [Concomitant]
     Dosage: FREQUENCY: AS NECESSARY.
  7. COPEGUS [Suspect]
     Dosage: 400 MG QD
     Route: 048
  8. TELAPREVIR [Suspect]
     Indication: HEPATITIS C
     Route: 048
  9. SYNTHROID [Concomitant]
  10. IMODIUM [Concomitant]
     Dosage: DOSE: 2 MG AS REQUIRED

REACTIONS (8)
  - PARAESTHESIA [None]
  - FALL [None]
  - DISORIENTATION [None]
  - ANAEMIA [None]
  - VERTIGO [None]
  - ASTHENIA [None]
  - VIITH NERVE PARALYSIS [None]
  - HEMIPARESIS [None]
